FAERS Safety Report 6809837-2 (Version None)
Quarter: 2010Q2

REPORT INFORMATION
  Report Type: 
  Country: None (occurrence: None)
  Receive Date: 20100630
  Receipt Date: 20100616
  Transmission Date: 20101027
  Serious: Yes (Death)
  Sender: FDA-Public Use
  Company Number: US-BRACCO-000418

PATIENT
  Sex: Male
  Weight: 104 kg

DRUGS (2)
  1. MULTIHANCE [Suspect]
     Indication: NUCLEAR MAGNETIC RESONANCE IMAGING
     Route: 042
     Dates: start: 20080307, end: 20080307
  2. MULTIHANCE [Suspect]
     Indication: BACK PAIN
     Route: 042
     Dates: start: 20080307, end: 20080307

REACTIONS (2)
  - ANAPHYLACTIC REACTION [None]
  - MYOCARDIAL INFARCTION [None]
